FAERS Safety Report 23378264 (Version 1)
Quarter: 2024Q1

REPORT INFORMATION
  Report Type: Spontaneous
  Country: US (occurrence: None)
  Receive Date: 20240105
  Receipt Date: 20240105
  Transmission Date: 20240410
  Serious: Yes (Death)
  Sender: FDA-Public Use
  Company Number: None

PATIENT
  Age: 37 Year
  Sex: Male
  Weight: 105.69 kg

DRUGS (1)
  1. TIANEPTINE [Suspect]
     Active Substance: TIANEPTINE
     Dosage: OTHER QUANTITY : 1 TEASPOON;?
     Route: 048

REACTIONS (5)
  - Toxicity to various agents [None]
  - Pulse absent [None]
  - Apnoeic attack [None]
  - Substance abuser [None]
  - Alcoholic [None]

NARRATIVE: CASE EVENT DATE: 20231105
